FAERS Safety Report 11672734 (Version 2)
Quarter: 2015Q4

REPORT INFORMATION
  Report Type: Spontaneous
  Country: FR (occurrence: FR)
  Receive Date: 20151028
  Receipt Date: 20151029
  Transmission Date: 20160304
  Serious: Yes (Hospitalization)
  Sender: FDA-Public Use
  Company Number: FR-009507513-1510FRA013048

PATIENT
  Age: 43 Year
  Sex: Male

DRUGS (4)
  1. EMEND [Suspect]
     Active Substance: APREPITANT
     Indication: PROPHYLAXIS OF NAUSEA AND VOMITING
     Dosage: 125 MG, QD, DAY 1
     Route: 048
  2. EMEND [Interacting]
     Active Substance: APREPITANT
     Dosage: 80 MG, QD, DAY 2
     Route: 048
  3. IFOSFAMIDE. [Interacting]
     Active Substance: IFOSFAMIDE
     Indication: MEDIASTINUM NEOPLASM
     Dosage: 2000 MG/M2, 4TH CYCLE
     Route: 042
  4. EMEND [Interacting]
     Active Substance: APREPITANT
     Dosage: 80 MG, QD, DAY 3
     Route: 048

REACTIONS (1)
  - Encephalopathy [Recovered/Resolved]

NARRATIVE: CASE EVENT DATE: 20150412
